FAERS Safety Report 26034400 (Version 1)
Quarter: 2025Q4

REPORT INFORMATION
  Report Type: Spontaneous
  Country: US (occurrence: US)
  Receive Date: 20251112
  Receipt Date: 20251112
  Transmission Date: 20260117
  Serious: Yes (Life-Threatening, Hospitalization)
  Sender: PROCTER AND GAMBLE
  Company Number: US-MLMSERVICE-20251029-PI690961-00029-1

PATIENT
  Age: 17 Year

DRUGS (1)
  1. ACETAMINOPHEN [Suspect]
     Active Substance: ACETAMINOPHEN
     Dosage: 9 GRAM

REACTIONS (13)
  - Hepatic steatosis [Recovering/Resolving]
  - Alanine aminotransferase increased [Recovering/Resolving]
  - Aspartate aminotransferase increased [Recovered/Resolved]
  - International normalised ratio increased [Recovering/Resolving]
  - Intentional overdose [Unknown]
  - Hyperbilirubinaemia [Recovering/Resolving]
  - Abdominal pain upper [Unknown]
  - Abdominal tenderness [Unknown]
  - Ocular icterus [Unknown]
  - Jaundice [Unknown]
  - Bilirubin conjugated increased [Unknown]
  - Blood bilirubin increased [Recovering/Resolving]
  - Intentional product use issue [Unknown]
